FAERS Safety Report 11756549 (Version 1)
Quarter: 2015Q4

REPORT INFORMATION
  Report Type: Spontaneous
  Country: IT (occurrence: IT)
  Receive Date: 20151119
  Receipt Date: 20151119
  Transmission Date: 20160304
  Serious: Yes (Other)
  Sender: FDA-Public Use
  Company Number: IT-ROCHE-1663507

PATIENT
  Age: 78 Year
  Sex: Female

DRUGS (12)
  1. TICLOPIDINE [Concomitant]
     Active Substance: TICLOPIDINE
     Route: 065
  2. PANTOPAN [Concomitant]
     Active Substance: PANTOPRAZOLE SODIUM
     Route: 065
  3. DICLOREUM [Concomitant]
     Active Substance: DICLOFENAC SODIUM
     Route: 065
  4. CO-EFFERALGAN [Concomitant]
     Active Substance: ACETAMINOPHEN\CODEINE PHOSPHATE
     Route: 065
  5. MABTHERA [Suspect]
     Active Substance: RITUXIMAB
     Indication: RHEUMATOID ARTHRITIS
     Route: 042
     Dates: start: 20141201
  6. ATENOL [Concomitant]
     Active Substance: ATENOLOL
     Dosage: 50 TABLET
     Route: 048
  7. ACTONEL [Concomitant]
     Active Substance: RISEDRONATE SODIUM
     Route: 065
  8. FOLINA (ITALY) [Concomitant]
     Route: 065
  9. LASIX [Concomitant]
     Active Substance: FUROSEMIDE
     Dosage: 30 TABLETS
     Route: 048
  10. DIBASE [Concomitant]
     Active Substance: CHOLECALCIFEROL
     Route: 065
  11. PREDNISONE. [Concomitant]
     Active Substance: PREDNISONE
     Route: 065
  12. METHOTREXATE [Suspect]
     Active Substance: METHOTREXATE
     Indication: RHEUMATOID ARTHRITIS
     Route: 058

REACTIONS (1)
  - Actinic cheilitis [Not Recovered/Not Resolved]

NARRATIVE: CASE EVENT DATE: 20150801
